FAERS Safety Report 6880972-6 (Version None)
Quarter: 2010Q2

REPORT INFORMATION
  Report Type: 
  Country: None (occurrence: None)
  Receive Date: 20100630
  Receipt Date: 20090410
  Transmission Date: 20101027
  Serious: Yes (Other)
  Sender: FDA-Public Use
  Company Number: 2009175998

PATIENT
  Age: 5 Year
  Sex: Female
  Weight: 28.1 kg

DRUGS (1)
  1. AZITHROMYCIN [Suspect]
     Indication: EAR INFECTION
     Dates: start: 20090221

REACTIONS (3)
  - ANAPHYLACTIC REACTION [None]
  - RASH [None]
  - VOMITING [None]
